FAERS Safety Report 19088671 (Version 2)
Quarter: 2021Q2

REPORT INFORMATION
  Report Type: Report from Study
  Country: None (occurrence: CR)
  Receive Date: 20210402
  Receipt Date: 20210409
  Transmission Date: 20210717
  Serious: Yes (Other)
  Sender: FDA-Public Use
  Company Number: CR-ABBVIE-21K-039-3835537-00

PATIENT
  Sex: Female
  Weight: 54 kg

DRUGS (1)
  1. HUMIRA [Suspect]
     Active Substance: ADALIMUMAB
     Indication: AXIAL SPONDYLOARTHRITIS
     Route: 058
     Dates: start: 20210128, end: 20210205

REACTIONS (5)
  - Sinus congestion [Not Recovered/Not Resolved]
  - Deafness [Not Recovered/Not Resolved]
  - Ear discomfort [Unknown]
  - Ear infection fungal [Not Recovered/Not Resolved]
  - Sinus disorder [Not Recovered/Not Resolved]

NARRATIVE: CASE EVENT DATE: 2021
